FAERS Safety Report 8554877-9 (Version None)
Quarter: 2012Q3

REPORT INFORMATION
  Report Type: 
  Country: None (occurrence: None)
  Receive Date: 20120731
  Receipt Date: 20120720
  Transmission Date: 20120928
  Serious: Yes (Hospitalization, Other)
  Sender: FDA-Public Use
  Company Number: FR-PFIZER INC-2012180016

PATIENT
  Age: 51 Year
  Sex: Female

DRUGS (12)
  1. PEGASYS [Concomitant]
     Indication: HEPATITIS C
     Dosage: UNK
     Dates: start: 20111005
  2. REBETOL [Concomitant]
     Indication: HEPATITIS C
     Dosage: UNK
     Dates: start: 20111005
  3. RAMIPRIL [Suspect]
     Dosage: UNK
     Route: 048
     Dates: start: 20080101, end: 20120614
  4. INCIVO [Concomitant]
     Indication: HEPATITIS C
     Dosage: UNK
     Dates: start: 20111005
  5. NEORECORMON [Concomitant]
     Indication: ANAEMIA
     Dosage: UNK
  6. LASIX [Concomitant]
     Dosage: UNK
  7. ATORVASTATIN [Concomitant]
     Dosage: UNK
  8. ASPIRIN [Concomitant]
     Dosage: UNK
  9. TENORMIN [Concomitant]
     Dosage: UNK
  10. AMLODIPINE BESYLATE [Concomitant]
     Dosage: UNK
  11. GLUCOPHAGE [Concomitant]
     Dosage: UNK
  12. DESLORATADINE [Concomitant]
     Dosage: UNK

REACTIONS (3)
  - DIABETES MELLITUS INADEQUATE CONTROL [None]
  - ANAEMIA [None]
  - ANGIOEDEMA [None]
